FAERS Safety Report 24569704 (Version 2)
Quarter: 2025Q3

REPORT INFORMATION
  Report Type: Spontaneous
  Country: US (occurrence: None)
  Receive Date: 20241031
  Receipt Date: 20250816
  Transmission Date: 20251020
  Serious: No
  Sender: ALEXION PHARMACEUTICALS
  Company Number: US-AstraZeneca-CH-00713791AP

PATIENT
  Age: 82 Year
  Sex: Male

DRUGS (1)
  1. BREZTRI [Suspect]
     Active Substance: BUDESONIDE\FORMOTEROL\GLYCOPYRROLATE
     Dosage: 160 MICROGRAM, BID

REACTIONS (3)
  - Confusional state [Unknown]
  - Incorrect dose administered by device [Unknown]
  - Device use confusion [Unknown]

NARRATIVE: CASE EVENT DATE: 20240901
